FAERS Safety Report 15213255 (Version 2)
Quarter: 2019Q1

REPORT INFORMATION
  Report Type: Spontaneous
  Country: DE (occurrence: DE)
  Receive Date: 20180730
  Receipt Date: 20190223
  Transmission Date: 20190417
  Serious: Yes (Life-Threatening, Hospitalization, Other)
  Sender: FDA-Public Use
  Company Number: DE-ACCORD-068808

PATIENT
  Age: 23 Year
  Sex: Male

DRUGS (2)
  1. METHYLPHENIDATE. [Interacting]
     Active Substance: METHYLPHENIDATE
     Indication: ATTENTION DEFICIT/HYPERACTIVITY DISORDER
     Dosage: 40 MG SLOW-RELEASE (STEADY DOSE SINCE SEVERAL YEARS)
  2. QUETIAPINE. [Suspect]
     Active Substance: QUETIAPINE
     Indication: AGITATION
     Dosage: 25 MG ON THE FIRST DAY FOLLOWED BY A 9-DAY TREATMENT WITH 50 MG PER DAY
     Route: 048

REACTIONS (4)
  - Blood creatine phosphokinase increased [Recovered/Resolved]
  - Alanine aminotransferase increased [Recovered/Resolved]
  - Drug interaction [Unknown]
  - Aspartate aminotransferase increased [Recovered/Resolved]
